FAERS Safety Report 6257772-3 (Version None)
Quarter: 2009Q3

REPORT INFORMATION
  Report Type: 
  Country: None (occurrence: None)
  Receive Date: 20090702
  Receipt Date: 20090617
  Transmission Date: 20100115
  Serious: Yes (Death, Other)
  Sender: FDA-Public Use
  Company Number: 2009EU002426

PATIENT

DRUGS (2)
  1. TACROLIMUS [Suspect]
     Indication: LIVER TRANSPLANT
     Dosage: UNK, UNKNOWN/D, UNKNOWN
  2. PREDNISONE TAB [Suspect]
     Indication: LIVER TRANSPLANT
     Dosage: UNK, UNKNOWN/D, UNKNOWN

REACTIONS (7)
  - BK VIRUS INFECTION [None]
  - LIVER TRANSPLANT REJECTION [None]
  - MULTI-ORGAN FAILURE [None]
  - NOSOCOMIAL INFECTION [None]
  - PNEUMONIA CYTOMEGALOVIRAL [None]
  - RENAL FAILURE [None]
  - VIRAEMIA [None]
